FAERS Safety Report 17831803 (Version 1)
Quarter: 2020Q2

REPORT INFORMATION
  Report Type: Spontaneous
  Country: JP (occurrence: JP)
  Receive Date: 20200527
  Receipt Date: 20200527
  Transmission Date: 20200714
  Serious: Yes (Hospitalization, Other)
  Sender: FDA-Public Use
  Company Number: JP-009507513-2005JPN008992

PATIENT
  Age: 6 Decade
  Sex: Male

DRUGS (16)
  1. LYRICA [Suspect]
     Active Substance: PREGABALIN
     Indication: HYPOAESTHESIA
     Dosage: 150 MG, Q12H
     Route: 048
  2. MAGNESIUM OXIDE. [Concomitant]
     Active Substance: MAGNESIUM OXIDE
     Dosage: UNK
     Dates: end: 20200325
  3. METFORMIN HYDROCHLORIDE. [Concomitant]
     Active Substance: METFORMIN HYDROCHLORIDE
     Dosage: UNK
     Dates: start: 20171010, end: 20200325
  4. LYRICA [Suspect]
     Active Substance: PREGABALIN
     Dosage: 300 DF
     Route: 048
     Dates: start: 20200325, end: 20200325
  5. FERROUS CITRATE [Concomitant]
     Active Substance: FERROUS CITRATE
     Dosage: UNK
     Dates: start: 20180406, end: 20200325
  6. GLACTIV [Suspect]
     Active Substance: SITAGLIPTIN
     Dosage: 50 MG, EVERYDAY
     Route: 048
     Dates: start: 20200328
  7. FUROSEMIDE. [Concomitant]
     Active Substance: FUROSEMIDE
     Dosage: UNK
     Dates: start: 20170303, end: 20200325
  8. GLACTIV [Suspect]
     Active Substance: SITAGLIPTIN
     Dosage: 60 DF
     Route: 048
     Dates: start: 20200325, end: 20200325
  9. MECOBALAMIN [Concomitant]
     Active Substance: METHYLCOBALAMIN
     Dosage: UNK
     Dates: start: 20190426, end: 20200325
  10. GLACTIV [Suspect]
     Active Substance: SITAGLIPTIN
     Indication: TYPE 2 DIABETES MELLITUS
     Dosage: 50 MG, EVERYDAY
     Route: 048
     Dates: start: 20171005
  11. ACETAMINOPHEN (+) TRAMADOL HYDROCHLORIDE [Suspect]
     Active Substance: ACETAMINOPHEN\TRAMADOL HYDROCHLORIDE
     Dosage: 2 DF, Q6H
     Route: 048
     Dates: start: 20200328
  12. MIGLITOL. [Concomitant]
     Active Substance: MIGLITOL
     Dosage: UNK
     Dates: start: 20171006, end: 20200325
  13. LYRICA [Suspect]
     Active Substance: PREGABALIN
     Dosage: 150 MG, Q12H
     Route: 048
     Dates: start: 20200328
  14. ACETAMINOPHEN (+) TRAMADOL HYDROCHLORIDE [Suspect]
     Active Substance: ACETAMINOPHEN\TRAMADOL HYDROCHLORIDE
     Indication: PAIN
     Dosage: 2 DF, Q6H
     Route: 048
  15. DANTRIUM (DANTROLENE SODIUM) [Concomitant]
     Active Substance: DANTROLENE SODIUM
     Dosage: UNK
     Dates: end: 20200325
  16. ACETAMINOPHEN (+) TRAMADOL HYDROCHLORIDE [Suspect]
     Active Substance: ACETAMINOPHEN\TRAMADOL HYDROCHLORIDE
     Dosage: 20 DF
     Route: 048
     Dates: start: 20200325, end: 20200325

REACTIONS (4)
  - Altered state of consciousness [Recovered/Resolved]
  - Somnolence [Unknown]
  - Hypoglycaemia [Unknown]
  - Intentional overdose [Unknown]

NARRATIVE: CASE EVENT DATE: 20200325
